FAERS Safety Report 6252709-5 (Version None)
Quarter: 2009Q3

REPORT INFORMATION
  Report Type: 
  Country: None (occurrence: None)
  Receive Date: 20090701
  Receipt Date: 20090619
  Transmission Date: 20100115
  Serious: Yes (Hospitalization)
  Sender: FDA-Public Use
  Company Number: FR-ELI_LILLY_AND_COMPANY-FR200906004489

PATIENT
  Sex: Female
  Weight: 58 kg

DRUGS (18)
  1. ALIMTA [Suspect]
     Indication: LUNG ADENOCARCINOMA METASTATIC
     Dosage: 825 MG, UNKNOWN
     Route: 042
     Dates: start: 20090301
  2. ALIMTA [Suspect]
     Dosage: 825 MG, UNKNOWN
     Route: 042
     Dates: start: 20090323
  3. ALIMTA [Suspect]
     Dosage: 825 MG, UNKNOWN
     Route: 042
     Dates: start: 20090414
  4. ALIMTA [Suspect]
     Dosage: 825 MG, UNKNOWN
     Route: 042
     Dates: start: 20090505
  5. AVASTIN [Concomitant]
     Indication: LUNG ADENOCARCINOMA METASTATIC
     Dosage: 437 MG, UNKNOWN
     Route: 042
     Dates: start: 20090414
  6. AVASTIN [Concomitant]
     Dosage: 437 MG, UNKNOWN
     Route: 042
     Dates: start: 20090505
  7. NEXIUM [Concomitant]
     Dosage: 20 MG, DAILY (1/D)
     Route: 048
     Dates: start: 20090216, end: 20090430
  8. IXPRIM [Concomitant]
     Dosage: 3 TIMES DAILY
     Route: 048
     Dates: start: 20090302, end: 20090407
  9. TAHOR [Concomitant]
     Dosage: UNK, UNKNOWN
     Route: 065
  10. ALDACTAZINE [Concomitant]
     Dosage: UNK, UNKNOWN
     Route: 065
  11. ADALAT [Concomitant]
     Dosage: UNK, UNKNOWN
     Route: 065
  12. XYZAL [Concomitant]
     Dosage: UNK, UNKNOWN
     Route: 065
  13. CIRKAN [Concomitant]
     Dosage: UNK, UNKNOWN
     Route: 065
  14. PAROXETINE HCL [Concomitant]
     Dosage: UNK, UNKNOWN
     Route: 065
  15. BROMAZEPAM [Concomitant]
     Dosage: UNK, UNKNOWN
     Route: 065
  16. FRAXODI [Concomitant]
     Dosage: UNK, UNKNOWN
     Route: 065
  17. DIFFU K [Concomitant]
     Dosage: UNK, UNKNOWN
     Route: 065
  18. CACIT D3 [Concomitant]

REACTIONS (2)
  - CHOLESTASIS [None]
  - LIVER INJURY [None]
